FAERS Safety Report 4410636-X (Version None)
Quarter: 2004Q3

REPORT INFORMATION
  Report Type: 
  Country: None (occurrence: None)
  Receive Date: 20040728
  Receipt Date: 20040728
  Transmission Date: 20050211
  Serious: Yes (Life-Threatening)
  Sender: FDA-Public Use
  Company Number: None

PATIENT
  Age: 41 Year
  Sex: Female
  Weight: 55.7924 kg

DRUGS (2)
  1. ZOFRAN [Suspect]
     Indication: NAUSEA
     Dosage: 4 MG-PRN- IV
     Route: 042
     Dates: start: 20040727
  2. ZOFRAN [Suspect]
     Indication: VOMITING
     Dosage: 4 MG-PRN- IV
     Route: 042
     Dates: start: 20040727

REACTIONS (3)
  - CHEST PAIN [None]
  - COMA [None]
  - LETHARGY [None]
